FAERS Safety Report 6249157-0 (Version None)
Quarter: 2009Q2

REPORT INFORMATION
  Report Type: 
  Country: None (occurrence: None)
  Receive Date: 20090624
  Receipt Date: 20090618
  Transmission Date: 20091009
  Serious: Yes (Hospitalization)
  Sender: FDA-Public Use
  Company Number: 2009AL004006

PATIENT
  Age: 65 Year
  Sex: Male
  Weight: 60.5098 kg

DRUGS (6)
  1. METOCLOPRAMIDE [Suspect]
     Indication: DYSPEPSIA
     Dates: start: 20090421
  2. SUNITINIB MALATE [Concomitant]
  3. HEXAMIDINE [Concomitant]
  4. LOPERAMIDE HYDROCHLORIDE [Concomitant]
  5. VITAMIN B COMPLEX CAP [Concomitant]
  6. RABEPRAZOLE SODIUM [Concomitant]

REACTIONS (4)
  - ANOREXIA [None]
  - HAEMATEMESIS [None]
  - HYPONATRAEMIA [None]
  - ORAL PAIN [None]
